FAERS Safety Report 22211862 (Version 1)
Quarter: 2023Q2

REPORT INFORMATION
  Report Type: Report from Study
  Country: CN (occurrence: CN)
  Receive Date: 20230414
  Receipt Date: 20230414
  Transmission Date: 20230722
  Serious: Yes (Hospitalization)
  Sender: FDA-Public Use
  Company Number: CN-PFIZER INC-PV202300065339

PATIENT
  Age: 66 Year
  Sex: Female
  Weight: 55 kg

DRUGS (15)
  1. EPIRUBICIN HYDROCHLORIDE [Suspect]
     Active Substance: EPIRUBICIN HYDROCHLORIDE
     Indication: Hepatic cancer
     Dosage: 40 MG
     Dates: start: 20230222
  2. CAMRELIZUMAB [Suspect]
     Active Substance: CAMRELIZUMAB
     Indication: Hepatic cancer
     Dosage: 200 MG, ONCE
     Route: 041
     Dates: start: 20230224, end: 20230224
  3. CAMRELIZUMAB [Suspect]
     Active Substance: CAMRELIZUMAB
     Dosage: 200 MG, ONCE
     Route: 041
     Dates: start: 20230317, end: 20230317
  4. APATINIB [Suspect]
     Active Substance: APATINIB
     Indication: Hepatic cancer
     Dosage: 250 MG, 1X/DAY
     Route: 048
     Dates: start: 20230226, end: 20230228
  5. APATINIB [Suspect]
     Active Substance: APATINIB
     Dosage: 250 MG, 1X/DAY
     Route: 048
     Dates: start: 20230305, end: 20230324
  6. HERBALS\DIAMMONIUM GLYCYRRHIZINATE [Concomitant]
     Active Substance: HERBALS\DIAMMONIUM GLYCYRRHIZINATE
     Indication: Hepatic cirrhosis
     Dosage: 150 MG, 3X/DAY
     Route: 048
     Dates: start: 20230228
  7. TENOFOVIR DISOPROXIL FUMARATE [Concomitant]
     Active Substance: TENOFOVIR DISOPROXIL FUMARATE
     Indication: Hepatitis B
     Dosage: 300 MG, 1X/DAY
     Route: 048
  8. DOMPERIDONE [Concomitant]
     Active Substance: DOMPERIDONE
     Indication: Abdominal distension
     Dosage: 10 MG, 3X/DAY
     Route: 048
     Dates: start: 20230228
  9. FUROSEMIDE [Concomitant]
     Active Substance: FUROSEMIDE
     Indication: Ascites
     Dosage: 20 MG, 2X/DAY
     Route: 048
     Dates: start: 20230228
  10. SPIRONOLACTONE [Concomitant]
     Active Substance: SPIRONOLACTONE
     Indication: Ascites
     Dosage: 40 MG, 2X/DAY
     Route: 048
     Dates: start: 20230228
  11. MOSAPRIDE CITRATE [Concomitant]
     Active Substance: MOSAPRIDE CITRATE
     Indication: Abdominal discomfort
     Dosage: 5 MG, 3X/DAY
     Route: 048
     Dates: start: 20230307
  12. AMOXICILLIN [Concomitant]
     Active Substance: AMOXICILLIN
     Indication: Abdominal discomfort
     Dosage: 1 G, 2X/DAY
     Route: 048
     Dates: start: 20230307
  13. OMEPRAZOLE [Concomitant]
     Active Substance: OMEPRAZOLE
     Indication: Abdominal discomfort
     Dosage: 20 MG, 2X/DAY
     Route: 048
     Dates: start: 20230307
  14. LEVOTHYROXINE [Concomitant]
     Active Substance: LEVOTHYROXINE
     Indication: Hypothyroidism
     Dosage: 25 UG, 1X/DAY
     Route: 048
     Dates: start: 20230317
  15. PHOSPHOLIPID [Concomitant]
     Active Substance: PHOSPHOLIPID
     Indication: Hepatic cirrhosis
     Dosage: 456 MG, 3X/DAY
     Route: 048
     Dates: start: 20230317

REACTIONS (2)
  - Hepatic encephalopathy [Not Recovered/Not Resolved]
  - Blood pressure increased [Not Recovered/Not Resolved]

NARRATIVE: CASE EVENT DATE: 20230324
